FAERS Safety Report 5109177-6 (Version None)
Quarter: 2006Q3

REPORT INFORMATION
  Report Type: 
  Country: None (occurrence: None)
  Receive Date: 20060918
  Receipt Date: 20060829
  Transmission Date: 20061208
  Serious: Yes (Hospitalization)
  Sender: FDA-Public Use
  Company Number: US200606005421

PATIENT
  Age: 77 Year
  Sex: Female

DRUGS (2)
  1. FORTEO [Suspect]
     Indication: OSTEOPOROSIS
     Dosage: 20 UG, DAILY (1/D), SUBCUTANEOUS
     Route: 058
     Dates: start: 20050601
  2. FORTEO [Concomitant]

REACTIONS (26)
  - ARTHRALGIA [None]
  - ATRIAL HYPERTROPHY [None]
  - BACK PAIN [None]
  - BLOOD CREATININE INCREASED [None]
  - BUTTOCK PAIN [None]
  - CEREBROVASCULAR ACCIDENT [None]
  - DEPRESSION [None]
  - DIARRHOEA [None]
  - DILATATION ATRIAL [None]
  - DYSPHAGIA [None]
  - DYSPNOEA EXERTIONAL [None]
  - ECCHYMOSIS [None]
  - FACIAL PALSY [None]
  - HYPERTENSION [None]
  - MUSCULOSKELETAL DISCOMFORT [None]
  - MUSCULOSKELETAL PAIN [None]
  - NAUSEA [None]
  - PERICARDIAL EFFUSION [None]
  - PHARMACEUTICAL PRODUCT COMPLAINT [None]
  - PULMONARY HYPERTENSION [None]
  - PYELONEPHRITIS [None]
  - RESTLESS LEGS SYNDROME [None]
  - SJOGREN'S SYNDROME [None]
  - SKIN ATROPHY [None]
  - SPINAL OSTEOARTHRITIS [None]
  - VENTRICULAR HYPERTROPHY [None]
